FAERS Safety Report 6411428-2 (Version None)
Quarter: 2009Q4

REPORT INFORMATION
  Report Type: 
  Country: None (occurrence: None)
  Receive Date: 20091023
  Receipt Date: 20091016
  Transmission Date: 20100525
  Serious: Yes (Other)
  Sender: FDA-Public Use
  Company Number: US-ELI_LILLY_AND_COMPANY-US200909003407

PATIENT
  Sex: Male
  Weight: 117.1 kg

DRUGS (8)
  1. BYETTA [Suspect]
     Indication: TYPE 2 DIABETES MELLITUS
     Dosage: 5 UG, 2/D
     Route: 058
     Dates: start: 20070101
  2. BYETTA [Suspect]
     Dosage: 10 UG, 2/D
     Route: 058
  3. GLYBURIDE [Concomitant]
     Dosage: UNK, 2/D
  4. METFORMIN HCL [Concomitant]
     Dosage: UNK, 2/D
  5. PRANDIN /USA/ [Concomitant]
     Dosage: UNK, 3/D
  6. ZOCOR [Concomitant]
  7. METOPROLOL [Concomitant]
  8. HYTRIN [Concomitant]

REACTIONS (1)
  - PANCREATITIS [None]
